FAERS Safety Report 7472052-6 (Version None)
Quarter: 2011Q2

REPORT INFORMATION
  Report Type: 
  Country: None (occurrence: None)
  Receive Date: 20110511
  Receipt Date: 20101029
  Transmission Date: 20111010
  Serious: No
  Sender: FDA-Public Use
  Company Number: A0890994A

PATIENT
  Sex: Female

DRUGS (2)
  1. XELODA [Concomitant]
  2. TYKERB [Suspect]
     Dosage: 750MG PER DAY
     Route: 048
     Dates: start: 20101023

REACTIONS (6)
  - FATIGUE [None]
  - DRY MOUTH [None]
  - DYSGEUSIA [None]
  - DIARRHOEA [None]
  - RASH [None]
  - GLOSSODYNIA [None]
